APPROVED DRUG PRODUCT: PREDNISOLONE SODIUM PHOSPHATE
Active Ingredient: PREDNISOLONE SODIUM PHOSPHATE
Strength: EQ 15MG BASE
Dosage Form/Route: TABLET, ORALLY DISINTEGRATING;ORAL
Application: A202179 | Product #002
Applicant: RISING PHARMA HOLDINGS INC
Approved: Apr 10, 2013 | RLD: No | RS: No | Type: DISCN